FAERS Safety Report 4377705-4 (Version None)
Quarter: 2004Q2

REPORT INFORMATION
  Report Type: 
  Country: None (occurrence: None)
  Receive Date: 20040615
  Receipt Date: 20040420
  Transmission Date: 20050107
  Serious: Yes (Other)
  Sender: FDA-Public Use
  Company Number: JP-BRISTOL-MYERS SQUIBB COMPANY-12564795

PATIENT
  Age: 63 Year
  Sex: Male

DRUGS (3)
  1. PARAPLATIN [Suspect]
     Indication: OROPHARYNGEAL CANCER STAGE UNSPECIFIED
     Route: 042
     Dates: start: 20010703, end: 20010703
  2. DOCETAXEL [Suspect]
     Indication: OROPHARYNGEAL CANCER STAGE UNSPECIFIED
     Route: 042
     Dates: start: 20010703, end: 20010703
  3. RADIATION THERAPY [Concomitant]
     Dates: start: 20010618, end: 20010403

REACTIONS (4)
  - GASTROENTERITIS STAPHYLOCOCCAL [None]
  - PNEUMONIA [None]
  - RADIATION MUCOSITIS [None]
  - STAPHYLOCOCCAL INFECTION [None]
